FAERS Safety Report 21748231 (Version 1)
Quarter: 2022Q4

REPORT INFORMATION
  Report Type: Spontaneous
  Country: US (occurrence: US)
  Receive Date: 20221219
  Receipt Date: 20221219
  Transmission Date: 20230113
  Serious: No
  Sender: FDA-Public Use
  Company Number: US-SA-SAC20221216000252

PATIENT
  Age: 15 Year
  Sex: Male
  Weight: 71.66 kg

DRUGS (8)
  1. DUPIXENT [Suspect]
     Active Substance: DUPILUMAB
     Indication: Dermatitis atopic
     Dosage: 300 MG, 1X
     Route: 058
     Dates: start: 20221130, end: 20221130
  2. ZYRTEC-D [Concomitant]
     Active Substance: CETIRIZINE HYDROCHLORIDE\PSEUDOEPHEDRINE HYDROCHLORIDE
  3. PEPCID AC [Concomitant]
     Active Substance: FAMOTIDINE
  4. PROAIR DIGIHALER [Concomitant]
     Active Substance: ALBUTEROL SULFATE
  5. HYDROXYZINE HYDROCHLORIDE [Concomitant]
     Active Substance: HYDROXYZINE HYDROCHLORIDE
  6. PROTOPIC [Concomitant]
     Active Substance: TACROLIMUS
  7. CEPHALEXIN [Concomitant]
     Active Substance: CEPHALEXIN
  8. FLUCONAZOLE [Concomitant]
     Active Substance: FLUCONAZOLE

REACTIONS (1)
  - Incorrect dose administered [Unknown]

NARRATIVE: CASE EVENT DATE: 20221130
